FAERS Safety Report 7243992-8 (Version None)
Quarter: 2011Q1

REPORT INFORMATION
  Report Type: 
  Country: None (occurrence: None)
  Receive Date: 20110125
  Receipt Date: 20110113
  Transmission Date: 20110831
  Serious: Yes (Hospitalization)
  Sender: FDA-Public Use
  Company Number: FR-CELGENEUS-056-21880-10091684

PATIENT
  Sex: Female

DRUGS (5)
  1. REVLIMID [Suspect]
     Route: 048
     Dates: start: 20091101, end: 20100707
  2. LERCAN [Concomitant]
     Indication: HYPERTENSION
     Route: 048
  3. DEXAMETHASONE [Concomitant]
     Route: 065
     Dates: start: 20091101, end: 20100701
  4. BACTRIM [Concomitant]
     Indication: PROPHYLAXIS
     Route: 048
     Dates: start: 20091101, end: 20100701
  5. ZELITREX [Concomitant]
     Indication: PROPHYLAXIS
     Route: 065
     Dates: start: 20091101, end: 20101007

REACTIONS (1)
  - VIITH NERVE PARALYSIS [None]
